FAERS Safety Report 7780220-9 (Version None)
Quarter: 2011Q3

REPORT INFORMATION
  Report Type: 
  Country: None (occurrence: None)
  Receive Date: 20110927
  Receipt Date: 20110524
  Transmission Date: 20111222
  Serious: No
  Sender: FDA-Public Use
  Company Number: US-ASTRAZENECA-2011SE32216

PATIENT
  Sex: Male

DRUGS (1)
  1. SEROQUEL XR [Suspect]
     Indication: BIPOLAR DISORDER
     Dosage: 150 MG OR 200 MG
     Route: 048

REACTIONS (2)
  - BLOOD TESTOSTERONE DECREASED [None]
  - SEXUAL DYSFUNCTION [None]
